FAERS Safety Report 9782730 (Version 1)
Quarter: 2013Q4

REPORT INFORMATION
  Report Type: Spontaneous
  Country: DK (occurrence: None)
  Receive Date: 20131220
  Receipt Date: 20131220
  Transmission Date: 20140711
  Serious: Yes (Hospitalization, Other)
  Sender: FDA-Public Use
  Company Number: E2B_7258596

PATIENT
  Age: 28 Year
  Sex: Female

DRUGS (1)
  1. EUTHYROX [Suspect]
     Indication: HYPOTHYROIDISM
     Dates: start: 20101028

REACTIONS (11)
  - Anxiety [None]
  - Suicidal ideation [None]
  - Depression [None]
  - Cardiac arrest [None]
  - General physical health deterioration [None]
  - Chest pain [None]
  - Dyspnoea [None]
  - Disability [None]
  - Memory impairment [None]
  - Disturbance in attention [None]
  - Vomiting [None]
